FAERS Safety Report 8770851 (Version 1)
Quarter: 2012Q4

REPORT INFORMATION
  Report Type: 
  Country: US (occurrence: US)
  Receive Date: 20120906
  Receipt Date: 20120906
  Transmission Date: 20130627
  Serious: Yes (Hospitalization)
  Sender: FDA-Public Use
  Company Number: US-PFIZER INC-2012217649

PATIENT
  Age: 53 Year
  Sex: Male
  Weight: 101 kg

DRUGS (17)
  1. LYRICA [Suspect]
     Indication: FIBROMYALGIA
     Dosage: 300 mg, 2x/day
     Dates: start: 200702
  2. LYRICA [Suspect]
     Indication: DIABETIC NEUROPATHY
  3. NOVOLOG [Concomitant]
     Indication: DIABETES MELLITUS
     Dosage: 20 IU, 3x/day
  4. NOVOLIN [Concomitant]
     Indication: DIABETES MELLITUS
     Dosage: 20 IU, 2x/day
  5. LOVAZA [Concomitant]
     Indication: CARDIAC DISORDER
     Dosage: UNK, 2x/day
     Route: 048
  6. TICAGRELOR [Concomitant]
     Indication: ANTICOAGULANT THERAPY
     Dosage: 90 mg, 2x/day
     Route: 048
  7. ATORVASTATIN [Concomitant]
     Dosage: 80 mg, daily
  8. METOPROLOL TARTRATE [Concomitant]
     Dosage: 50 mg, 2x/day
  9. PANTOPRAZOLE SODIUM [Concomitant]
     Dosage: 40 mg, daily
  10. FOLIC ACID [Concomitant]
     Dosage: 1 mg, daily
  11. LEVOTHYROXINE [Concomitant]
     Indication: THYROID DISORDER
     Dosage: 125 ug, daily
  12. MAGNESIUM OXIDE [Concomitant]
     Dosage: 400 mg, 3x/day
  13. PREDNISONE [Concomitant]
     Indication: ARTHRITIS
     Dosage: 5 mg, 3x/day
  14. OXYCODONE [Concomitant]
     Dosage: 70 mg, as needed
  15. ALBUTEROL SULFATE [Concomitant]
     Indication: DYSPNOEA
     Dosage: UNK, as needed
  16. ALBUTEROL SULFATE [Concomitant]
     Indication: PALPITATIONS
  17. ACETYLSALICYLIC ACID [Concomitant]
     Indication: CARDIAC DISORDER
     Dosage: 81 mg, daily

REACTIONS (1)
  - Myocardial infarction [Recovered/Resolved]
